FAERS Safety Report 7377893-1 (Version None)
Quarter: 2011Q1

REPORT INFORMATION
  Report Type: 
  Country: None (occurrence: None)
  Receive Date: 20110328
  Receipt Date: 20110315
  Transmission Date: 20110831
  Serious: Yes (Hospitalization)
  Sender: FDA-Public Use
  Company Number: US-ACTELION-A-NJ2011-45822

PATIENT

DRUGS (7)
  1. SILDENAFIL [Concomitant]
  2. ALDACTONE [Concomitant]
  3. COUMADIN [Concomitant]
  4. LASIX [Concomitant]
  5. TRACLEER [Suspect]
     Indication: PULMONARY ARTERIAL HYPERTENSION
     Dosage: UNK
     Route: 048
     Dates: start: 20060101
  6. VELETRI [Suspect]
     Indication: PULMONARY ARTERIAL HYPERTENSION
     Dosage: 169 NG/KG, PER MIN
     Route: 041
     Dates: start: 20110228
  7. DIGOXIN [Concomitant]

REACTIONS (9)
  - HEADACHE [None]
  - MIGRAINE [None]
  - PAIN IN JAW [None]
  - COUGH [None]
  - FLUSHING [None]
  - RASH [None]
  - VOMITING [None]
  - DIARRHOEA [None]
  - DIZZINESS [None]
